FAERS Safety Report 8003846-6 (Version None)
Quarter: 2011Q4

REPORT INFORMATION
  Report Type: 
  Country: None (occurrence: None)
  Receive Date: 20111222
  Receipt Date: 20111215
  Transmission Date: 20120403
  Serious: Yes (Other)
  Sender: FDA-Public Use
  Company Number: FR-ELI_LILLY_AND_COMPANY-FR201012006298

PATIENT
  Age: 65 Year
  Sex: Male
  Weight: 47 kg

DRUGS (1)
  1. GEMZAR [Suspect]
     Indication: PANCREATIC CARCINOMA
     Dosage: UNK, EVERY TWO WEEKS
     Route: 042
     Dates: start: 20100511, end: 20101110

REACTIONS (5)
  - HAEMOLYTIC ANAEMIA [None]
  - RED BLOOD CELL SCHISTOCYTES PRESENT [None]
  - BLOOD CREATININE INCREASED [None]
  - THROMBOCYTOPENIA [None]
  - HAEMOLYTIC URAEMIC SYNDROME [None]
